FAERS Safety Report 5341391-7 (Version None)
Quarter: 2007Q2

REPORT INFORMATION
  Report Type: 
  Country: None (occurrence: None)
  Receive Date: 20070530
  Receipt Date: 20070515
  Transmission Date: 20071010
  Serious: Yes (Other)
  Sender: FDA-Public Use
  Company Number: GXKR2007PL04229

PATIENT
  Age: 72 Year
  Sex: Female

DRUGS (3)
  1. SOTALOL HCL [Suspect]
     Indication: PALPITATIONS
     Dosage: 160 MG, ORAL
     Route: 048
     Dates: end: 20070510
  2. KALDYUM (POTASSIUM CHLORIDE) [Concomitant]
  3. RELANIUM (DIAZEPAM0 [Concomitant]

REACTIONS (10)
  - ABDOMINAL PAIN [None]
  - BEZOAR [None]
  - BILE OUTPUT [None]
  - BLOOD POTASSIUM INCREASED [None]
  - DUODENOGASTRIC REFLUX [None]
  - GASTRITIS EROSIVE [None]
  - HELICOBACTER PYLORI IDENTIFICATION TEST POSITIVE [None]
  - HYPOTENSION [None]
  - MALAISE [None]
  - REFLUX GASTRITIS [None]
